FAERS Safety Report 12338912 (Version 2)
Quarter: 2016Q2

REPORT INFORMATION
  Report Type: Spontaneous
  Country: US (occurrence: US)
  Receive Date: 20160505
  Receipt Date: 20160614
  Transmission Date: 20160815
  Serious: Yes (Other)
  Sender: FDA-Public Use
  Company Number: US-PFIZER INC-2016239999

PATIENT
  Age: 42 Year
  Sex: Male

DRUGS (3)
  1. PHENOBARBITAL. [Concomitant]
     Active Substance: PHENOBARBITAL
     Dosage: 0.09 G, UNK
     Dates: start: 194703
  2. SECONAL SODIUM [Concomitant]
     Active Substance: SECOBARBITAL SODIUM
     Dosage: 0.09 G, UNK
     Dates: start: 19470227, end: 19470330
  3. STREPTOMYCIN [Suspect]
     Active Substance: STREPTOMYCIN\STREPTOMYCIN SULFATE
     Indication: DISSEMINATED TUBERCULOSIS
     Dosage: 3 G, (GIVEN EVERY TWENTY-FOUR HOURS, IN DIVIDED DOSES AT FOUR HOUR INTERVALS)
     Dates: start: 19470227, end: 19470325

REACTIONS (2)
  - Agranulocytosis [Unknown]
  - Leukopenia [Unknown]

NARRATIVE: CASE EVENT DATE: 194703
